FAERS Safety Report 25808718 (Version 1)
Quarter: 2025Q3

REPORT INFORMATION
  Report Type: Spontaneous
  Country: BR (occurrence: BR)
  Receive Date: 20250916
  Receipt Date: 20250916
  Transmission Date: 20251021
  Serious: Yes (Other)
  Sender: AMGEN
  Company Number: BR-AMGEN-BRASP2025181659

PATIENT
  Age: 67 Year
  Sex: Female

DRUGS (1)
  1. REPATHA [Suspect]
     Active Substance: EVOLOCUMAB
     Indication: Carotid artery disease
     Dosage: UNK UNK, Q2WK, EVERY 15 DAYS, (140MG/ML)
     Route: 065
     Dates: start: 2024

REACTIONS (5)
  - Seizure [Unknown]
  - Dizziness [Unknown]
  - Blood cholesterol abnormal [Unknown]
  - Memory impairment [Unknown]
  - Device difficult to use [Unknown]

NARRATIVE: CASE EVENT DATE: 20250902
